FAERS Safety Report 4767705-4 (Version None)
Quarter: 2005Q3

REPORT INFORMATION
  Report Type: 
  Country: None (occurrence: None)
  Receive Date: 20050912
  Receipt Date: 20050902
  Transmission Date: 20060218
  Serious: Yes (Hospitalization, Other)
  Sender: FDA-Public Use
  Company Number: 2005-06-1624

PATIENT
  Age: 61 Year
  Sex: Female
  Weight: 65 kg

DRUGS (6)
  1. TEMODAL [Suspect]
     Indication: GLIOBLASTOMA
     Dosage: 75 MG/M^2 ORAL
     Route: 048
     Dates: start: 20050113, end: 20050228
  2. BACTRIM DS [Suspect]
     Indication: PROPHYLAXIS
     Dosage: ORAL
     Route: 048
     Dates: start: 20050113, end: 20050325
  3. DEPAKENE [Suspect]
     Dates: start: 20041215, end: 20050404
  4. RADIATION THERAPY FOR GLIOBLASTOMA [Concomitant]
  5. CORTANCYL [Concomitant]
  6. ZELITREX (VALACICLOVIR) [Concomitant]

REACTIONS (3)
  - ANAEMIA [None]
  - BONE MARROW DEPRESSION [None]
  - DRUG INTERACTION [None]
